FAERS Safety Report 25732357 (Version 1)
Quarter: 2025Q3

REPORT INFORMATION
  Report Type: Spontaneous
  Country: US (occurrence: US)
  Receive Date: 20250827
  Receipt Date: 20250827
  Transmission Date: 20251020
  Serious: No
  Sender: ALEXION PHARMACEUTICALS
  Company Number: US-AstraZeneca-CH-00937491AP

PATIENT
  Sex: Female

DRUGS (1)
  1. BREZTRI [Suspect]
     Active Substance: BUDESONIDE\FORMOTEROL\GLYCOPYRROLATE
     Indication: Asthma

REACTIONS (6)
  - Inappropriate schedule of product administration [Unknown]
  - Product administration error [Unknown]
  - Blood glucose increased [Unknown]
  - Device use issue [Unknown]
  - Incorrect dose administered by device [Unknown]
  - Therapeutic response unexpected [Unknown]
